FAERS Safety Report 6377323-2 (Version None)
Quarter: 2009Q3

REPORT INFORMATION
  Report Type: 
  Country: None (occurrence: None)
  Receive Date: 20090923
  Receipt Date: 20090923
  Transmission Date: 20100115
  Serious: Yes (Life-Threatening)
  Sender: FDA-Public Use
  Company Number: None

PATIENT
  Age: 75 Year
  Sex: Female
  Weight: 61 kg

DRUGS (6)
  1. HYDROMORPHONE [Suspect]
     Indication: PAIN
     Dosage: 0/0, 2/10 IV  PCA   ; 0.2 MG IV X 1
     Route: 042
     Dates: start: 20090724
  2. HEPARIN [Concomitant]
  3. CARVEDILOL [Concomitant]
  4. INSULIN [Concomitant]
  5. LANSOPRAZOLE [Concomitant]
  6. MONTELUKAST [Concomitant]

REACTIONS (1)
  - RESPIRATION ABNORMAL [None]
